FAERS Safety Report 18362006 (Version 1)
Quarter: 2020Q4

REPORT INFORMATION
  Report Type: Report from Study
  Country: None (occurrence: MX)
  Receive Date: 20201008
  Receipt Date: 20201008
  Transmission Date: 20210114
  Serious: Yes (Hospitalization, Other)
  Sender: FDA-Public Use
  Company Number: MX-ABBVIE-20P-107-3596542-00

PATIENT
  Age: 22 Year
  Sex: Female
  Weight: 88 kg

DRUGS (1)
  1. CREON [Suspect]
     Active Substance: PANCRELIPASE AMYLASE\PANCRELIPASE LIPASE\PANCRELIPASE PROTEASE
     Indication: PANCREATITIS CHRONIC
     Route: 048
     Dates: start: 200409

REACTIONS (9)
  - Surgery [Recovered/Resolved]
  - Malaise [Unknown]
  - Systemic lupus erythematosus [Not Recovered/Not Resolved]
  - Pain [Recovered/Resolved]
  - Renal failure [Not Recovered/Not Resolved]
  - Intentional dose omission [Unknown]
  - Pancreatitis [Recovered/Resolved]
  - Diabetes mellitus [Not Recovered/Not Resolved]
  - Cardiac disorder [Not Recovered/Not Resolved]

NARRATIVE: CASE EVENT DATE: 200409
